FAERS Safety Report 9369918 (Version 1)
Quarter: 2013Q2

REPORT INFORMATION
  Report Type: Spontaneous
  Country: GB (occurrence: GB)
  Receive Date: 20130626
  Receipt Date: 20130626
  Transmission Date: 20140414
  Serious: Yes (Death)
  Sender: FDA-Public Use
  Company Number: GB-PFIZER INC-2013187211

PATIENT
  Age: 41 Year
  Sex: Female

DRUGS (1)
  1. PREGABALIN [Suspect]
     Indication: ANXIETY
     Dosage: UNK
     Route: 048
     Dates: start: 20121031, end: 20121121

REACTIONS (1)
  - Completed suicide [Fatal]
